FAERS Safety Report 6878501-6 (Version None)
Quarter: 2010Q3

REPORT INFORMATION
  Report Type: 
  Country: None (occurrence: None)
  Receive Date: 20100728
  Receipt Date: 20100726
  Transmission Date: 20110219
  Serious: Yes (Hospitalization)
  Sender: FDA-Public Use
  Company Number: IT-TEVA-242595ISR

PATIENT
  Sex: Male

DRUGS (3)
  1. FLUOROURACIL [Suspect]
  2. CISPLATIN [Suspect]
  3. EPIRUBICIN [Suspect]

REACTIONS (1)
  - CEREBRAL ISCHAEMIA [None]
